FAERS Safety Report 10196104 (Version 1)
Quarter: 2014Q2

REPORT INFORMATION
  Report Type: Spontaneous
  Country: GB (occurrence: None)
  Receive Date: 20140522
  Receipt Date: 20140522
  Transmission Date: 20141212
  Serious: Yes (Life-Threatening)
  Sender: FDA-Public Use
  Company Number: GB-DEXPHARM-20140278

PATIENT
  Age: 70 Year
  Sex: Male

DRUGS (5)
  1. OMEPRAZOLE (OMEPRAZOLE) [Suspect]
     Dates: start: 20140303, end: 20140331
  2. BISACODY [Concomitant]
  3. DOMPERIDONE [Concomitant]
  4. OMEPRAZOLE [Suspect]
     Dates: start: 20140106, end: 20140221
  5. OMEPRAZOLE [Suspect]
     Dates: start: 20140409

REACTIONS (2)
  - Tubulointerstitial nephritis [None]
  - Renal failure acute [None]
